FAERS Safety Report 5582460-6 (Version None)
Quarter: 2007Q4

REPORT INFORMATION
  Report Type: 
  Country: None (occurrence: None)
  Receive Date: 20071130
  Receipt Date: 20070207
  Transmission Date: 20080405
  Serious: Yes (Other)
  Sender: FDA-Public Use
  Company Number: WAES 0702USA01022

PATIENT
  Age: 76 Year
  Sex: Female

DRUGS (4)
  1. FOSAMAX [Suspect]
     Indication: OSTEOPOROSIS
     Dosage: PO
     Route: 048
  2. AMSIDYL [Concomitant]
  3. COUMADIN [Concomitant]
  4. DIGITEK [Concomitant]

REACTIONS (1)
  - OSTEONECROSIS [None]
